FAERS Safety Report 19330145 (Version 1)
Quarter: 2021Q2

REPORT INFORMATION
  Report Type: Spontaneous
  Country: US (occurrence: US)
  Receive Date: 20210528
  Receipt Date: 20210528
  Transmission Date: 20210717
  Serious: Yes (Life-Threatening, Other)
  Sender: FDA-Public Use
  Company Number: US-ASTRAZENECA-2021A466906

PATIENT
  Age: 68 Year
  Sex: Male

DRUGS (8)
  1. FLUOCINONIDE. [Concomitant]
     Active Substance: FLUOCINONIDE
  2. METOPROLOL. [Concomitant]
     Active Substance: METOPROLOL
  3. AMLODIPINE [Concomitant]
     Active Substance: AMLODIPINE BESYLATE
  4. METFORMIN [Concomitant]
     Active Substance: METFORMIN HYDROCHLORIDE
  5. LEVOTHYROXINE. [Interacting]
     Active Substance: LEVOTHYROXINE
     Route: 065
  6. FOSINOPRIL [Concomitant]
     Active Substance: FOSINOPRIL
  7. DOXAZOSIN [Concomitant]
     Active Substance: DOXAZOSIN MESYLATE
  8. ROSUVASTATIN. [Suspect]
     Active Substance: ROSUVASTATIN
     Route: 048

REACTIONS (4)
  - Drug interaction [Unknown]
  - Treatment noncompliance [Unknown]
  - Acute kidney injury [Unknown]
  - Rhabdomyolysis [Unknown]
